FAERS Safety Report 16922545 (Version 2)
Quarter: 2019Q4

REPORT INFORMATION
  Report Type: Spontaneous
  Country: AR (occurrence: AR)
  Receive Date: 20191016
  Receipt Date: 20191101
  Transmission Date: 20200122
  Serious: Yes (Hospitalization, Other)
  Sender: FDA-Public Use
  Company Number: AR-PFIZER INC-2019396990

PATIENT
  Age: 88 Year
  Sex: Female

DRUGS (7)
  1. XELJANZ [Suspect]
     Active Substance: TOFACITINIB CITRATE
     Indication: RHEUMATOID ARTHRITIS
     Dosage: 5 MG TWICE A DAY
     Dates: start: 20190204, end: 201908
  2. XELJANZ [Suspect]
     Active Substance: TOFACITINIB CITRATE
     Dosage: 5 MG TWICE A DAY
     Dates: end: 201910
  3. SINTROM [Concomitant]
     Active Substance: ACENOCOUMAROL
     Dosage: UNK UNK, CYCLIC (1/2 TABLET ONE DAY AND THE NEXT DAY 1/4 TABLET ALTERNATING)
     Dates: start: 201907
  4. CARVEDILOL. [Concomitant]
     Active Substance: CARVEDILOL
     Dosage: 6.25 MG, 2X/DAY
     Dates: start: 201907
  5. LOTRIAL [ENALAPRIL MALEATE] [Concomitant]
     Dosage: UNK UNK, DAILY (1/2 TABLET)
  6. ROSUVASTATINA [ROSUVASTATIN] [Concomitant]
     Active Substance: ROSUVASTATIN
     Dosage: 1 DF, 1X/DAY
  7. DELTISONA [Concomitant]
     Active Substance: PREDNISONE
     Dosage: UNK UNK, DAILY (1/2 TABLET)

REACTIONS (4)
  - Arrhythmia [Recovering/Resolving]
  - Agitation [Recovering/Resolving]
  - Fluid retention [Not Recovered/Not Resolved]
  - Cardiac disorder [Not Recovered/Not Resolved]

NARRATIVE: CASE EVENT DATE: 2019
